FAERS Safety Report 9471255 (Version 1)
Quarter: 2013Q3

REPORT INFORMATION
  Report Type: Spontaneous
  Country: JP (occurrence: JP)
  Receive Date: 20130822
  Receipt Date: 20130822
  Transmission Date: 20140515
  Serious: Yes (Other)
  Sender: FDA-Public Use
  Company Number: PHHY2013JP090986

PATIENT
  Sex: Female

DRUGS (1)
  1. TEGRETOL [Suspect]
     Indication: CONVULSION
     Dosage: 200 MG (100 MG IN THE MORNING AND 100 MG IN THE EVENING), DAILY
     Route: 048

REACTIONS (5)
  - Appendicitis [Unknown]
  - Dysstasia [Unknown]
  - Vision blurred [Unknown]
  - Constipation [Unknown]
  - Myalgia [Unknown]
